FAERS Safety Report 6778939-1 (Version None)
Quarter: 2010Q2

REPORT INFORMATION
  Report Type: 
  Country: None (occurrence: None)
  Receive Date: 20100618
  Receipt Date: 20100607
  Transmission Date: 20101027
  Serious: Yes (Death)
  Sender: FDA-Public Use
  Company Number: JP-SANOFI-AVENTIS-2010SA018609

PATIENT
  Age: 68 Year
  Sex: Female
  Weight: 41 kg

DRUGS (14)
  1. OXALIPLATIN [Suspect]
     Indication: COLON CANCER
     Route: 041
     Dates: start: 20091110, end: 20091110
  2. OXALIPLATIN [Suspect]
     Route: 041
  3. CAMPTOSAR [Suspect]
     Indication: COLON CANCER
     Route: 041
     Dates: start: 20090818, end: 20090818
  4. CAMPTOSAR [Suspect]
     Route: 041
     Dates: start: 20100302, end: 20100302
  5. AVASTIN [Suspect]
     Indication: COLON CANCER
     Route: 041
     Dates: start: 20090818, end: 20090818
  6. AVASTIN [Suspect]
     Route: 041
     Dates: start: 20100302, end: 20100302
  7. CALCIUM LEVOFOLINATE [Concomitant]
     Indication: COLON CANCER
     Route: 041
     Dates: start: 20090818, end: 20090818
  8. CALCIUM LEVOFOLINATE [Concomitant]
     Route: 041
     Dates: start: 20100302, end: 20100302
  9. FLUOROURACIL [Concomitant]
     Indication: COLON CANCER
     Route: 040
     Dates: start: 20090818, end: 20090818
  10. FLUOROURACIL [Concomitant]
     Route: 041
     Dates: start: 20090818, end: 20090819
  11. FLUOROURACIL [Concomitant]
     Route: 040
     Dates: start: 20100302, end: 20100302
  12. FLUOROURACIL [Concomitant]
     Route: 041
     Dates: start: 20100302, end: 20100303
  13. DEXAMETHASONE SODIUM PHOSPHATE [Concomitant]
     Indication: PREMEDICATION
     Route: 041
     Dates: start: 20090818, end: 20100302
  14. SEROTONE [Concomitant]
     Indication: PREMEDICATION
     Route: 041
     Dates: start: 20090818, end: 20100302

REACTIONS (1)
  - CARDIAC DISORDER [None]
